FAERS Safety Report 8586820-0 (Version None)
Quarter: 2012Q3

REPORT INFORMATION
  Report Type: 
  Country: None (occurrence: None)
  Receive Date: 20120810
  Receipt Date: 20120807
  Transmission Date: 20120928
  Serious: No
  Sender: FDA-Public Use
  Company Number: US-B.I. PHARMACEUTICALS,INC./RIDGEFIELD-2012-BP-17771BP

PATIENT
  Sex: Female

DRUGS (13)
  1. ALBUTEROL [Concomitant]
     Route: 055
  2. LORTAB [Concomitant]
     Route: 048
  3. PROPRANOLOL [Concomitant]
     Dosage: 40 MG
     Route: 048
  4. OMEPRAZOLE [Concomitant]
     Dosage: 20 MG
     Route: 048
  5. SPIRIVA [Suspect]
     Indication: LUNG DISORDER
     Dosage: 18 MCG
     Route: 055
     Dates: start: 20111101, end: 20120701
  6. ASPIRIN [Concomitant]
     Dosage: 160 MG
     Route: 048
  7. HYDROCHLOROTHIAZIDE [Concomitant]
     Dosage: 12.5 MG
  8. FLUTICASONE PROPIONATE [Concomitant]
     Route: 055
  9. PROAIR HFA [Concomitant]
  10. SYSTANE OPTH [Concomitant]
  11. PRAVASTATIN SODIUM [Concomitant]
     Dosage: 40 MG
     Route: 048
  12. FLONASE [Concomitant]
     Route: 045
  13. SALINE [Concomitant]
     Indication: NASAL DRYNESS
     Route: 045

REACTIONS (4)
  - BACK PAIN [None]
  - MUSCULOSKELETAL PAIN [None]
  - CHEST PAIN [None]
  - URTICARIA [None]
